FAERS Safety Report 5330423-8 (Version None)
Quarter: 2007Q2

REPORT INFORMATION
  Report Type: 
  Country: None (occurrence: None)
  Receive Date: 20070521
  Receipt Date: 20070509
  Transmission Date: 20071010
  Serious: Yes (Other)
  Sender: FDA-Public Use
  Company Number: BR-PFIZER INC-2007037545

PATIENT
  Sex: Female

DRUGS (2)
  1. DALACIN T [Suspect]
     Indication: SKIN ODOUR ABNORMAL
     Dosage: TEXT:UNKNOWN-FREQ:BID: EVERY DAY
     Route: 061
  2. MULTI-VITAMINS [Concomitant]
     Route: 048
     Dates: start: 20060301, end: 20061219

REACTIONS (1)
  - PREMATURE LABOUR [None]
